APPROVED DRUG PRODUCT: MICAFUNGIN SODIUM
Active Ingredient: MICAFUNGIN SODIUM
Strength: EQ 50MG BASE/VIAL
Dosage Form/Route: INJECTABLE;INTRAVENOUS
Application: A219273 | Product #001 | TE Code: AP
Applicant: QILU PHARMACEUTICAL HAINAN CO LTD
Approved: Apr 3, 2025 | RLD: No | RS: No | Type: RX